FAERS Safety Report 5302547-2 (Version None)
Quarter: 2007Q2

REPORT INFORMATION
  Report Type: 
  Country: None (occurrence: None)
  Receive Date: 20070419
  Receipt Date: 20070411
  Transmission Date: 20071010
  Serious: Yes (Other)
  Sender: FDA-Public Use
  Company Number: US-KINGPHARMUSA00001-K200700454

PATIENT

DRUGS (2)
  1. ALTACE [Suspect]
     Route: 048
  2. TILDIEM [Suspect]

REACTIONS (2)
  - CONDITION AGGRAVATED [None]
  - ORAL INTAKE REDUCED [None]
